FAERS Safety Report 20906182 (Version 1)
Quarter: 2022Q2

REPORT INFORMATION
  Report Type: Spontaneous
  Country: US (occurrence: None)
  Receive Date: 20220602
  Receipt Date: 20220602
  Transmission Date: 20220721
  Serious: No
  Sender: FDA-Public Use
  Company Number: None

PATIENT
  Sex: Female

DRUGS (1)
  1. ADAKVEO [Suspect]
     Active Substance: CRIZANLIZUMAB-TMCA
     Indication: Sickle cell disease
     Dosage: 340MG WEEK 2, THEN MONTHLY INTRAVENOUSLY?
     Route: 042
     Dates: start: 202204

REACTIONS (2)
  - Hypersensitivity [None]
  - Therapy interrupted [None]
